FAERS Safety Report 7341968-3 (Version None)
Quarter: 2011Q1

REPORT INFORMATION
  Report Type: 
  Country: None (occurrence: None)
  Receive Date: 20110309
  Receipt Date: 20110225
  Transmission Date: 20110831
  Serious: Yes (Other)
  Sender: FDA-Public Use
  Company Number: JP-PFIZER INC-2011049570

PATIENT
  Sex: Female

DRUGS (7)
  1. URSO 250 [Concomitant]
     Indication: CHRONIC HEPATITIS
     Dosage: 600 MG, 1X/DAY
     Route: 048
  2. PURSENNID [Concomitant]
     Indication: CONSTIPATION
     Dosage: 12 MG, 1X/DAY
     Route: 048
  3. GASTER [Concomitant]
     Indication: GASTRITIS PROPHYLAXIS
     Dosage: 20 MG, 1X/DAY
     Route: 048
  4. AMLODIPINE [Suspect]
     Indication: HYPERTENSION
     Dosage: 5 MG, UNK
     Route: 048
     Dates: end: 20071203
  5. CALCIUM LACTATE [Concomitant]
     Indication: OSTEOPOROSIS
     Dosage: 3 G, 1X/DAY
     Route: 048
  6. ONE-ALPHA [Concomitant]
     Indication: OSTEOPOROSIS
     Dosage: 1 UG, 1X/DAY
     Route: 048
  7. SUMIFERON [Concomitant]
     Indication: HEPATITIS C
     Dosage: 3 IU, 1X/DAY
     Route: 058
     Dates: start: 20070212, end: 20070228

REACTIONS (1)
  - PARKINSONISM [None]
